FAERS Safety Report 15726850 (Version 1)
Quarter: 2018Q4

REPORT INFORMATION
  Report Type: Spontaneous
  Country: US (occurrence: US)
  Receive Date: 20181217
  Receipt Date: 20181217
  Transmission Date: 20190205
  Serious: Yes (Hospitalization, Other)
  Sender: FDA-Public Use
  Company Number: US-ACCORD-095879

PATIENT
  Age: 51 Year
  Sex: Female

DRUGS (12)
  1. TEMOZOLOMIDE. [Suspect]
     Active Substance: TEMOZOLOMIDE
     Indication: GLIOBLASTOMA MULTIFORME
     Dosage: ADJUVANT TEMOZOLOMIDE MONOTHERAPY 150 MG/M2 A DAY FOR FIVE?DAYS OF A 28-DAY CYCLE
  2. SIMVASTATIN. [Concomitant]
     Active Substance: SIMVASTATIN
  3. LEVETIRACETAM. [Concomitant]
     Active Substance: LEVETIRACETAM
  4. DEXAMETHASONE. [Concomitant]
     Active Substance: DEXAMETHASONE
  5. ONDANSETRON [Concomitant]
     Active Substance: ONDANSETRON
  6. PANTOPRAZOLE [Concomitant]
     Active Substance: PANTOPRAZOLE
  7. HYDROCHLOROTHIAZIDE/TRIAMTERENE [Concomitant]
  8. HYDROCODONE BITARTRATE/PARACETAMOL [Concomitant]
  9. SULFAMETHOXAZOLE/TRIMETHOPRIM [Concomitant]
     Indication: ANTIBIOTIC PROPHYLAXIS
     Dosage: (TMPSMX) 800-160
  10. NEBIVOLOL. [Concomitant]
     Active Substance: NEBIVOLOL
  11. LISINOPRIL. [Concomitant]
     Active Substance: LISINOPRIL
  12. ALBUTEROL. [Concomitant]
     Active Substance: ALBUTEROL

REACTIONS (3)
  - Herpes oesophagitis [Unknown]
  - Bone marrow failure [Unknown]
  - Aplastic anaemia [Unknown]
